FAERS Safety Report 11351132 (Version 1)
Quarter: 2015Q3

REPORT INFORMATION
  Report Type: Spontaneous
  Country: US (occurrence: US)
  Receive Date: 20150807
  Receipt Date: 20150807
  Transmission Date: 20151125
  Serious: No
  Sender: FDA-Public Use
  Company Number: US-JNJFOC-20141201377

PATIENT
  Age: 61 Year
  Sex: Male
  Weight: 106.6 kg

DRUGS (2)
  1. MENS ROGAINE EXTRA STRENGTH [Suspect]
     Active Substance: MINOXIDIL
     Indication: HAIR GROWTH ABNORMAL
     Dosage: WITH APPLICATOR
     Route: 061
     Dates: end: 20141115
  2. MENS ROGAINE EXTRA STRENGTH [Suspect]
     Active Substance: MINOXIDIL
     Route: 061

REACTIONS (3)
  - Blister [Recovering/Resolving]
  - Erythema [Recovering/Resolving]
  - Skin exfoliation [Unknown]
